FAERS Safety Report 15210987 (Version 1)
Quarter: 2018Q3

REPORT INFORMATION
  Report Type: Spontaneous
  Country: US (occurrence: US)
  Receive Date: 20180629
  Receipt Date: 20180629
  Transmission Date: 20181010
  Serious: Yes (Disabling)
  Sender: FDA-Public Use
  Company Number: None

PATIENT
  Age: 49 Year
  Sex: Female
  Weight: 63 kg

DRUGS (6)
  1. IMURAN [Concomitant]
     Active Substance: AZATHIOPRINE
  2. LO LOESTRA [Concomitant]
  3. LIDEX [Suspect]
     Active Substance: FLUOCINONIDE
     Indication: ECZEMA
     Route: 061
  4. PROTOPIC [Concomitant]
     Active Substance: TACROLIMUS
  5. HYDROCORTISONE CREAM [Suspect]
     Active Substance: HYDROCORTISONE
     Indication: ECZEMA
     Route: 061
  6. BENADRYL [Concomitant]
     Active Substance: DIPHENHYDRAMINE HYDROCHLORIDE

REACTIONS (12)
  - Body temperature fluctuation [None]
  - Ear swelling [None]
  - Oedema peripheral [None]
  - Eye swelling [None]
  - Eye infection [None]
  - Skin fissures [None]
  - Face oedema [None]
  - Therapy cessation [None]
  - Eczema [None]
  - Condition aggravated [None]
  - Dry skin [None]
  - Pruritus [None]

NARRATIVE: CASE EVENT DATE: 20161001
